FAERS Safety Report 21104268 (Version 1)
Quarter: 2022Q3

REPORT INFORMATION
  Report Type: Spontaneous
  Country: US (occurrence: None)
  Receive Date: 20220719
  Receipt Date: 20220719
  Transmission Date: 20221026
  Serious: Yes (unspecified)
  Sender: FDA-Public Use
  Company Number: None

PATIENT
  Age: 46 Year
  Sex: Female
  Weight: 108.86 kg

DRUGS (1)
  1. LEVOTHYROXINE [Suspect]
     Active Substance: LEVOTHYROXINE
     Indication: Autoimmune thyroiditis
     Dosage: FREQUENCY : DAILY;?
     Route: 048
     Dates: start: 20220204, end: 20220712

REACTIONS (2)
  - Generalised oedema [None]
  - Tremor [None]

NARRATIVE: CASE EVENT DATE: 20220716
